FAERS Safety Report 6483137-5 (Version None)
Quarter: 2009Q4

REPORT INFORMATION
  Report Type: 
  Country: None (occurrence: None)
  Receive Date: 20091208
  Receipt Date: 20091208
  Transmission Date: 20100525
  Serious: No
  Sender: FDA-Public Use
  Company Number: None

PATIENT
  Age: 82 Year
  Sex: Female
  Weight: 59.1 kg

DRUGS (1)
  1. EXELON [Suspect]
     Indication: MEMORY IMPAIRMENT
     Dosage: EXELON 3 MG ONE TWICE A DAY ORALLY
     Route: 048
     Dates: start: 20091109, end: 20091110

REACTIONS (4)
  - APPLICATION SITE IRRITATION [None]
  - ASTHENIA [None]
  - NAUSEA [None]
  - VOMITING [None]
